FAERS Safety Report 6784978-7 (Version None)
Quarter: 2010Q2

REPORT INFORMATION
  Report Type: 
  Country: None (occurrence: None)
  Receive Date: 20100618
  Receipt Date: 20100608
  Transmission Date: 20101027
  Serious: Yes (Hospitalization)
  Sender: FDA-Public Use
  Company Number: 2009-03605

PATIENT
  Age: 68 Year
  Sex: Male

DRUGS (3)
  1. VELCADE [Suspect]
     Indication: MULTIPLE MYELOMA
     Dosage: 1.8 MG, INTRAVENOUS
     Route: 042
     Dates: start: 20090630, end: 20090806
  2. DOXORUBICIN HCL [Suspect]
     Indication: MULTIPLE MYELOMA
     Dosage: 17 MG, INTRAVENOUS
     Route: 042
     Dates: start: 20090630, end: 20090729
  3. DEXAMETHASONE TAB [Suspect]
     Indication: MULTIPLE MYELOMA
     Dosage: 40 MG, ORAL
     Route: 048
     Dates: start: 20090630, end: 20090720

REACTIONS (6)
  - DEHYDRATION [None]
  - EATING DISORDER [None]
  - LOWER RESPIRATORY TRACT INFECTION [None]
  - MUCOSAL INFLAMMATION [None]
  - OROPHARYNGEAL PAIN [None]
  - PARAINFLUENZAE VIRUS INFECTION [None]
